FAERS Safety Report 19504488 (Version 1)
Quarter: 2021Q3

REPORT INFORMATION
  Report Type: Spontaneous
  Country: US (occurrence: US)
  Receive Date: 20210707
  Receipt Date: 20210707
  Transmission Date: 20211014
  Serious: Yes (Hospitalization)
  Sender: FDA-Public Use
  Company Number: None

PATIENT
  Age: 69 Year
  Sex: Female
  Weight: 80 kg

DRUGS (1)
  1. FERRIC NA GLUCONATE (FERRIC NA GLUCONATE 62.5MG /5ML INJ) [Suspect]
     Active Substance: SODIUM FERRIC GLUCONATE COMPLEX
     Indication: IRON DEFICIENCY ANAEMIA
     Dosage: ?          OTHER ROUTE:IV?
     Route: 042
     Dates: start: 20210630, end: 20210630

REACTIONS (11)
  - Swollen tongue [None]
  - Abdominal pain [None]
  - Anaphylactic reaction [None]
  - Infusion related reaction [None]
  - Syncope [None]
  - Hypotension [None]
  - Tongue pruritus [None]
  - Dizziness [None]
  - Throat irritation [None]
  - Oedema [None]
  - Pharyngeal swelling [None]

NARRATIVE: CASE EVENT DATE: 20210630
